FAERS Safety Report 9167626 (Version 3)
Quarter: 2013Q3

REPORT INFORMATION
  Report Type: Spontaneous
  Country: US (occurrence: None)
  Receive Date: 20130304
  Receipt Date: 20130815
  Transmission Date: 20140515
  Serious: Yes (Other)
  Sender: FDA-Public Use
  Company Number: ADR-2012-00784

PATIENT
  Sex: Female

DRUGS (3)
  1. BACLOFEN [Suspect]
     Indication: PAIN
  2. FENTANYL [Concomitant]
  3. CLONIDINE [Concomitant]

REACTIONS (6)
  - Drug effect decreased [None]
  - Device breakage [None]
  - Deafness unilateral [None]
  - Device alarm issue [None]
  - Device connection issue [None]
  - Pain [None]
